FAERS Safety Report 15667478 (Version 1)
Quarter: 2018Q4

REPORT INFORMATION
  Report Type: Spontaneous
  Country: US (occurrence: US)
  Receive Date: 20181128
  Receipt Date: 20181128
  Transmission Date: 20190205
  Serious: Yes (Other)
  Sender: FDA-Public Use
  Company Number: US-MIST-TIR-2018-1195

PATIENT
  Age: 57 Year
  Sex: Female

DRUGS (2)
  1. LEVOTHYROXINE. [Suspect]
     Active Substance: LEVOTHYROXINE
     Indication: PRODUCT USED FOR UNKNOWN INDICATION
     Dosage: 137MCG SIX DAYS PER WEEK
     Route: 065
  2. RIFAMPIN. [Suspect]
     Active Substance: RIFAMPIN
     Indication: MYCOBACTERIUM AVIUM COMPLEX INFECTION
     Dosage: UNKNOWN
     Route: 065

REACTIONS (5)
  - Dry skin [Unknown]
  - Weight increased [Unknown]
  - Blood thyroid stimulating hormone increased [Unknown]
  - Drug interaction [Unknown]
  - Fatigue [Unknown]
